FAERS Safety Report 8618057-0 (Version None)
Quarter: 2012Q3

REPORT INFORMATION
  Report Type: 
  Country: None (occurrence: None)
  Receive Date: 20120824
  Receipt Date: 20120423
  Transmission Date: 20120928
  Serious: No
  Sender: FDA-Public Use
  Company Number: US-ASTRAZENECA-2012SE09419

PATIENT
  Age: 64 Year
  Sex: Female
  Weight: 78 kg

DRUGS (2)
  1. MULTIPLE [Concomitant]
  2. SYMBICORT [Suspect]
     Indication: CHRONIC OBSTRUCTIVE PULMONARY DISEASE
     Dosage: 160/4.5 MCG, 2 PUFFS BID
     Route: 055
     Dates: start: 20101229, end: 20110203

REACTIONS (5)
  - COLITIS [None]
  - ABDOMINAL PAIN [None]
  - INTENTIONAL DRUG MISUSE [None]
  - DIARRHOEA [None]
  - RECTAL HAEMORRHAGE [None]
